FAERS Safety Report 9771001 (Version 2)
Quarter: 2014Q2

REPORT INFORMATION
  Report Type: Spontaneous
  Country: US (occurrence: US)
  Receive Date: 20131218
  Receipt Date: 20140408
  Transmission Date: 20141212
  Serious: No
  Sender: FDA-Public Use
  Company Number: US-PFIZER INC-2013358603

PATIENT
  Age: 38 Year
  Sex: Female

DRUGS (8)
  1. FLAGYL [Suspect]
     Dosage: UNK
  2. DILTIAZEM HCL [Suspect]
  3. AVELOX [Suspect]
     Dosage: UNK
  4. BACTRIM [Suspect]
     Dosage: UNK
  5. CEPHALEXIN [Suspect]
     Dosage: UNK
  6. ENTEX [Suspect]
     Dosage: UNK
  7. TETANUS TOXOID [Suspect]
     Dosage: UNK
  8. LASIX [Suspect]

REACTIONS (1)
  - Drug hypersensitivity [Unknown]
